FAERS Safety Report 8406815-7 (Version None)
Quarter: 2012Q2

REPORT INFORMATION
  Report Type: 
  Country: None (occurrence: None)
  Receive Date: 20120529
  Receipt Date: 19900829
  Transmission Date: 20120825
  Serious: Yes (Death, Other)
  Sender: FDA-Public Use
  Company Number: 002011

PATIENT
  Age: 82 Year
  Sex: Male

DRUGS (3)
  1. PLETAL [Suspect]
     Dosage: 200 MG, DAILY DOSE, ORAL
     Route: 048
     Dates: start: 19891220, end: 19900105
  2. PRK (PRK) [Concomitant]
  3. SERRAPEPTASE (SERRAPEPTASE) [Concomitant]

REACTIONS (25)
  - CARDIAC TAMPONADE [None]
  - GASTRIC NEOPLASM [None]
  - PANCREATIC ATROPHY [None]
  - GASTROINTESTINAL DISORDER [None]
  - CYANOSIS [None]
  - HYPERTENSION [None]
  - EMPHYSEMA [None]
  - ABDOMINAL ADHESIONS [None]
  - HAEMORRHAGIC DIATHESIS [None]
  - ARRHYTHMIA [None]
  - CEREBRAL INFARCTION [None]
  - PLEURAL ADHESION [None]
  - HEPATIC ATROPHY [None]
  - SPLENITIS [None]
  - NEPHROSCLEROSIS [None]
  - CYSTITIS [None]
  - ADRENAL ADENOMA [None]
  - MELANOSIS COLI [None]
  - PYELONEPHRITIS [None]
  - RESPIRATORY ARREST [None]
  - EPILEPSY [None]
  - AORTIC ANEURYSM RUPTURE [None]
  - CARDIOMYOPATHY [None]
  - GASTRITIS EROSIVE [None]
  - OESOPHAGITIS [None]
